FAERS Safety Report 8829830 (Version 1)
Quarter: 2012Q4

REPORT INFORMATION
  Report Type: 
  Country: JP (occurrence: JP)
  Receive Date: 20121008
  Receipt Date: 20121008
  Transmission Date: 20130627
  Serious: Yes (Other)
  Sender: FDA-Public Use
  Company Number: JP-ROCHE-1141809

PATIENT
  Sex: Female

DRUGS (1)
  1. XELODA [Suspect]
     Indication: BREAST CANCER METASTATIC
     Dosage: Dosage is uncertain.
     Route: 048
     Dates: start: 201203, end: 20120613

REACTIONS (6)
  - Hypoaesthesia [Unknown]
  - Blindness [Unknown]
  - Deafness [Unknown]
  - Dysstasia [Unknown]
  - Nail disorder [Recovered/Resolved]
  - Arthropathy [Recovered/Resolved]
